FAERS Safety Report 7826231-6 (Version None)
Quarter: 2011Q4

REPORT INFORMATION
  Report Type: 
  Country: None (occurrence: None)
  Receive Date: 20111020
  Receipt Date: 20111011
  Transmission Date: 20120403
  Serious: Yes (Death, Hospitalization)
  Sender: FDA-Public Use
  Company Number: BR-BIOGENIDEC-2011BI039020

PATIENT
  Age: 46 Year
  Sex: Female

DRUGS (3)
  1. MEDICATION (NOS) [Concomitant]
     Indication: MULTIPLE SCLEROSIS
  2. AVONEX [Suspect]
     Indication: MULTIPLE SCLEROSIS
     Route: 030
     Dates: start: 20040101, end: 20110929
  3. BACLOFEN [Concomitant]
     Indication: PRODUCT USED FOR UNKNOWN INDICATION

REACTIONS (4)
  - HYPERTENSION [None]
  - MALAISE [None]
  - HYPERTRIGLYCERIDAEMIA [None]
  - HEAT STROKE [None]
